FAERS Safety Report 5951470-9 (Version None)
Quarter: 2008Q4

REPORT INFORMATION
  Report Type: 
  Country: None (occurrence: None)
  Receive Date: 20081111
  Receipt Date: 20081111
  Transmission Date: 20090506
  Serious: Yes (Other)
  Sender: FDA-Public Use
  Company Number: None

PATIENT
  Age: 32 Year
  Sex: Female
  Weight: 112.9457 kg

DRUGS (2)
  1. TOPAMAX [Suspect]
     Indication: EPILEPSY
     Dosage: 50 MG BID PO
     Route: 048
     Dates: start: 20080925, end: 20081027
  2. TOPAMAX [Suspect]
     Indication: MIGRAINE
     Dosage: 50 MG BID PO
     Route: 048
     Dates: start: 20080925, end: 20081027

REACTIONS (4)
  - DYSGEUSIA [None]
  - HYPOAESTHESIA [None]
  - IMPAIRED WORK ABILITY [None]
  - PARAESTHESIA [None]
